FAERS Safety Report 9714255 (Version 3)
Quarter: 2015Q3

REPORT INFORMATION
  Report Type: Spontaneous
  Country: US (occurrence: US)
  Receive Date: 20131126
  Receipt Date: 20150803
  Transmission Date: 20151125
  Serious: No
  Sender: FDA-Public Use
  Company Number: US-GILEAD-2008-0019403

PATIENT
  Age: 72 Year
  Sex: Female
  Weight: 61.23 kg

DRUGS (6)
  1. FOSINOPRIL [Concomitant]
     Active Substance: FOSINOPRIL
  2. ALBUTEROL. [Concomitant]
     Active Substance: ALBUTEROL
  3. LETAIRIS [Suspect]
     Active Substance: AMBRISENTAN
     Indication: PULMONARY ARTERIAL HYPERTENSION
     Route: 048
  4. LETAIRIS [Suspect]
     Active Substance: AMBRISENTAN
     Route: 048
     Dates: start: 20081121
  5. COUMADIN [Concomitant]
     Active Substance: WARFARIN SODIUM
  6. SPIRIVA [Concomitant]
     Active Substance: TIOTROPIUM BROMIDE MONOHYDRATE

REACTIONS (2)
  - Dyspnoea [Unknown]
  - Palpitations [Unknown]
